FAERS Safety Report 4496531-9 (Version None)
Quarter: 2004Q4

REPORT INFORMATION
  Report Type: 
  Country: None (occurrence: None)
  Receive Date: 20041109
  Receipt Date: 20041025
  Transmission Date: 20050328
  Serious: Yes (Hospitalization)
  Sender: FDA-Public Use
  Company Number: JP-JNJFOC-20040806917

PATIENT
  Sex: Female
  Weight: 45 kg

DRUGS (15)
  1. REMICADE [Suspect]
     Route: 042
  2. REMICADE [Suspect]
     Route: 042
  3. REMICADE [Suspect]
     Indication: RHEUMATOID ARTHRITIS
     Route: 042
  4. METHOTREXATE [Concomitant]
  5. METHOTREXATE [Concomitant]
  6. METHOTREXATE [Concomitant]
  7. METHOTREXATE [Concomitant]
  8. PREDONINE [Concomitant]
     Dosage: SINCE BEFORE NOV-2000
     Route: 049
  9. LOXONINE [Concomitant]
     Route: 049
  10. RENIVACE [Concomitant]
     Indication: HYPERTENSION
     Dosage: SINCE BEFORE NOV-2000
     Route: 049
  11. PERDIPINE-LA [Concomitant]
     Indication: HYPERTENSION
     Route: 049
  12. MUCOSTA [Concomitant]
     Indication: GASTRITIS
     Route: 049
  13. ULGUT [Concomitant]
     Indication: GASTRITIS
     Route: 049
  14. RENDORMIN [Concomitant]
     Indication: INSOMNIA
     Dosage: SINCE BEFORE NOV-2000
     Route: 049
  15. FOLIAMIN [Concomitant]
     Route: 049

REACTIONS (7)
  - DEEP VEIN THROMBOSIS [None]
  - DEPRESSED LEVEL OF CONSCIOUSNESS [None]
  - DRUG INEFFECTIVE [None]
  - HYPOGLYCAEMIA [None]
  - HYPONATRAEMIA [None]
  - PALPITATIONS [None]
  - PNEUMOCYSTIS CARINII PNEUMONIA [None]
